FAERS Safety Report 17077254 (Version 9)
Quarter: 2021Q2

REPORT INFORMATION
  Report Type: Report from Study
  Country: NL (occurrence: NL)
  Receive Date: 20191126
  Receipt Date: 20210406
  Transmission Date: 20210716
  Serious: Yes (Other)
  Sender: FDA-Public Use
  Company Number: NL-AMGEN-NLDSL2019053706

PATIENT
  Age: 69 Year
  Sex: Female

DRUGS (23)
  1. XGEVA [Suspect]
     Active Substance: DENOSUMAB
     Dosage: 120 MILLIGRAM, Q4WK
     Route: 058
  2. CALCIUM CARBONATE;COLECALCIFEROL [Concomitant]
     Active Substance: CALCIUM CARBONATE\CHOLECALCIFEROL
     Dosage: 2,5G/880IE (1000MG CA), QD
     Dates: start: 20190516
  3. VALACICLOVIR [Concomitant]
     Active Substance: VALACYCLOVIR HYDROCHLORIDE
     Dosage: 500 MILLIGRAM, 2D1T
     Dates: start: 20181026
  4. SALBUTAMOL [Concomitant]
     Active Substance: ALBUTEROL
     Dosage: 200UG/DO 60DO DISKUS WHEN NEEDED 1?4XD 1INH
     Dates: start: 20190617
  5. TRIAMCINOLONACETONIDE [Concomitant]
     Active Substance: TRIAMCINOLONE ACETONIDE
     Dosage: INJSUSP 40MG/ML FL 1ML (PAR) UNK.
  6. LENALIDOMIDE [Concomitant]
     Active Substance: LENALIDOMIDE
     Dosage: 10 MILLIGRAM, 1D1T 3W1C
     Dates: start: 20190225
  7. CODEINE [Concomitant]
     Active Substance: CODEINE
     Dosage: 20 MILLIGRAM, 1?3XD 1T
  8. NORTRIPTYLINE [Concomitant]
     Active Substance: NORTRIPTYLINE
     Dosage: 25 MILLIGRAM, QD
  9. DOXYCYCLINE. [Concomitant]
     Active Substance: DOXYCYCLINE
     Dosage: 100 MILLIGRAM
  10. HYPROMELLOSE [Concomitant]
     Active Substance: HYPROMELLOSES
     Dosage: 3 MILLIGRAM PER MILLILITRE
  11. AMOXICILLINE [AMOXICILLIN] [Concomitant]
     Active Substance: AMOXICILLIN
     Dosage: 500 MILLIGRAM, 3D1C,
  12. NORTRIPTYLINE [Concomitant]
     Active Substance: NORTRIPTYLINE
     Dosage: 50 MILLIGRAM, QD
  13. NORTRIPTYLINE [Concomitant]
     Active Substance: NORTRIPTYLINE
     Dosage: 10 MILLIGRAM, QD
  14. HYALURON [HYALURONIC ACID] [Concomitant]
     Active Substance: HYALURONIC ACID
     Dosage: UNK, AS NECESSARY
  15. BUDESONIDA, FORMOTEROL [Concomitant]
     Active Substance: BUDESONIDE\FORMOTEROL FUMARATE
     Dosage: 200/6UG/DO (=160/4,5UG) 120DOTUR 2XD 1PUFF
  16. MACROGOL [Concomitant]
     Active Substance: POLYETHYLENE GLYCOLS
     Dosage: 1?2D1S.
  17. HYDROCORTISON ACETATE [Concomitant]
     Active Substance: HYDROCORTISONE ACETATE
     Dosage: 10 MILLIGRAM PER GRAM,WHEN NEEDED
  18. XGEVA [Suspect]
     Active Substance: DENOSUMAB
     Dosage: 120 MILLIGRAM, Q4WK
     Route: 058
  19. ESCITALOPRAM [Concomitant]
     Active Substance: ESCITALOPRAM OXALATE
     Dosage: 10 MILLIGRAM,KEER PER DAG 1 TABLET
     Dates: start: 20190301
  20. XGEVA [Suspect]
     Active Substance: DENOSUMAB
     Indication: METASTATIC BONE DISEASE PROPHYLAXIS
     Dosage: 120 MILLIGRAM PER MILLILITRE, 70MG/ML FLACON 1,7ML, Q4WK
     Route: 058
     Dates: start: 20190402
  21. XGEVA [Suspect]
     Active Substance: DENOSUMAB
     Dosage: 120 MILLIGRAM, Q4WK
     Route: 058
  22. XGEVA [Suspect]
     Active Substance: DENOSUMAB
     Dosage: 120 MILLIGRAM, Q4WK
     Route: 058
  23. LENALIDOMIDE [Concomitant]
     Active Substance: LENALIDOMIDE
     Dosage: 5 MILLIGRAM, QD

REACTIONS (8)
  - Dental care [Unknown]
  - Joint stiffness [Unknown]
  - Osteitis [Unknown]
  - Pain in jaw [Not Recovered/Not Resolved]
  - Respiratory tract infection [Recovered/Resolved]
  - Osteonecrosis of jaw [Recovered/Resolved]
  - Myalgia [Recovered/Resolved]
  - Musculoskeletal stiffness [Not Recovered/Not Resolved]

NARRATIVE: CASE EVENT DATE: 20190703
